FAERS Safety Report 4293488-0 (Version None)
Quarter: 2004Q1

REPORT INFORMATION
  Report Type: 
  Country: None (occurrence: None)
  Receive Date: 20040210
  Receipt Date: 20040205
  Transmission Date: 20041129
  Serious: Yes (Hospitalization)
  Sender: FDA-Public Use
  Company Number: STA-AE-04-MTX-047

PATIENT
  Age: 52 Year
  Sex: Male

DRUGS (2)
  1. METHOTREXATE [Suspect]
     Indication: RHEUMATOID ARTHRITIS
     Dosage: 10 MG 1X PER 1 WK, ORAL
     Route: 048
     Dates: end: 20031201
  2. ENBREL [Suspect]
     Indication: RHEUMATOID ARTHRITIS
     Dosage: 25 MG 2X PER 1 WK, SC
     Route: 058
     Dates: start: 20030101, end: 20031201

REACTIONS (4)
  - ACTINOMYCOTIC PULMONARY INFECTION [None]
  - LUNG ABSCESS [None]
  - PLEURISY [None]
  - PULMONARY TUBERCULOSIS [None]
